FAERS Safety Report 21954812 (Version 2)
Quarter: 2023Q1

REPORT INFORMATION
  Report Type: Spontaneous
  Country: JP (occurrence: JP)
  Receive Date: 20230205
  Receipt Date: 20230224
  Transmission Date: 20230418
  Serious: Yes (Hospitalization)
  Sender: FDA-Public Use
  Company Number: JP-002147023-NVSJ2022JP275916

PATIENT
  Age: 73 Year
  Sex: Male
  Weight: 50.5 kg

DRUGS (15)
  1. OCTREOTIDE ACETATE [Suspect]
     Active Substance: OCTREOTIDE ACETATE
     Indication: Acromegaly
     Dosage: 30 MG, QMO
     Route: 030
     Dates: start: 20081125, end: 20221208
  2. OCTREOTIDE ACETATE [Suspect]
     Active Substance: OCTREOTIDE ACETATE
  3. OCTREOTIDE ACETATE [Suspect]
     Active Substance: OCTREOTIDE ACETATE
  4. CARVEDILOL [Concomitant]
     Active Substance: CARVEDILOL
     Indication: Hypertension
     Dosage: 8.75 MG, QD
     Route: 048
  5. CORTRIL [Concomitant]
     Active Substance: HYDROCORTISONE
     Indication: Adrenal insufficiency
     Dosage: 10 MG, QD
     Route: 048
     Dates: start: 20170424
  6. SITAGLIPTIN [Concomitant]
     Active Substance: SITAGLIPTIN
     Indication: Diabetes mellitus
     Dosage: 50 MG, QD
     Route: 048
     Dates: start: 20200702
  7. VOGLIBOSE [Concomitant]
     Active Substance: VOGLIBOSE
     Indication: Diabetes mellitus
     Dosage: 0.2 MG, QD
     Route: 048
     Dates: start: 20210805
  8. ALFAROL [Concomitant]
     Active Substance: ALFACALCIDOL
     Indication: Osteoporosis
     Dosage: 0.25 MG, QD
     Route: 048
     Dates: start: 20210930
  9. INDOMETHACIN [Concomitant]
     Active Substance: INDOMETHACIN
     Indication: Back pain
     Dosage: 70 MG, QD
     Route: 003
     Dates: start: 20220331
  10. ACTONEL [Concomitant]
     Active Substance: RISEDRONATE SODIUM
     Indication: Osteoporosis
     Dosage: 75 MG, QMO
     Route: 048
     Dates: start: 20220721
  11. GLYCOSAMINOGLYCANS [Concomitant]
     Active Substance: GLYCOSAMINOGLYCANS
     Indication: Dry skin
     Dosage: A SUFFICIENT QUANTITY
     Route: 003
     Dates: start: 20210802
  12. SINGULAIR [Concomitant]
     Active Substance: MONTELUKAST SODIUM
     Indication: Asthma
     Dosage: 10 MG, QD
     Route: 048
     Dates: start: 20180412
  13. BEPRIDIL [Concomitant]
     Active Substance: BEPRIDIL
     Indication: Atrial fibrillation
     Dosage: 50 MG, QD
     Route: 048
     Dates: start: 20180515
  14. PLAVIX [Concomitant]
     Active Substance: CLOPIDOGREL BISULFATE
     Indication: Coronary artery stenosis
     Dosage: 75 MG, QD
     Route: 048
     Dates: start: 20210603
  15. ISOSORBIDE DINITRATE [Concomitant]
     Active Substance: ISOSORBIDE DINITRATE
     Indication: Coronary artery stenosis
     Dosage: 40 MG, QD
     Route: 003
     Dates: start: 20210625

REACTIONS (13)
  - Muscle injury [Recovering/Resolving]
  - Blood creatine phosphokinase increased [Recovered/Resolved]
  - Pain in extremity [Not Recovered/Not Resolved]
  - Musculoskeletal pain [Unknown]
  - Gait disturbance [Recovering/Resolving]
  - Injection site oedema [Unknown]
  - Pain [Recovering/Resolving]
  - Sciatic nerve injury [Recovering/Resolving]
  - Hypoaesthesia [Unknown]
  - Injection site extravasation [Unknown]
  - Injection site inflammation [Unknown]
  - Back pain [Unknown]
  - Dry skin [Unknown]

NARRATIVE: CASE EVENT DATE: 20221208
